FAERS Safety Report 4437585-5 (Version None)
Quarter: 2004Q3

REPORT INFORMATION
  Report Type: 
  Country: None (occurrence: None)
  Receive Date: 20040831
  Receipt Date: 20040824
  Transmission Date: 20050211
  Serious: Yes (Hospitalization)
  Sender: FDA-Public Use
  Company Number: IT-BRISTOL-MYERS SQUIBB COMPANY-12680906

PATIENT
  Age: 66 Year
  Sex: Male

DRUGS (12)
  1. CETUXIMAB [Suspect]
     Indication: COLORECTAL CANCER METASTATIC
     Dosage: PT RECEIVED ONE DOSE
     Route: 042
     Dates: start: 20040401, end: 20040401
  2. IRINOTECAN [Suspect]
     Indication: COLORECTAL CANCER METASTATIC
     Dosage: PT REC'D ONE DOSE
     Route: 042
     Dates: start: 20040401, end: 20040401
  3. AMOXICILLIN [Concomitant]
     Dates: start: 20040817
  4. CLAVULANIC ACID [Concomitant]
     Dates: start: 20040817
  5. ENOXAPARIN SODIUM [Concomitant]
     Dates: start: 20040817
  6. LACTULOSE [Concomitant]
     Dates: start: 20040817
  7. TRAMADOL HCL [Concomitant]
     Dates: start: 20040817
  8. CLORIDAROL [Concomitant]
     Dates: start: 20040817
  9. CITALOPRAM [Concomitant]
     Dates: start: 20040817
  10. PREDNISONE [Concomitant]
     Dates: start: 20040817
  11. LANSOPRAZOLE [Concomitant]
     Dates: start: 20040817
  12. LORAZEPAM [Concomitant]
     Dates: start: 20040817

REACTIONS (2)
  - MULTIPLE FRACTURES [None]
  - SUICIDAL IDEATION [None]
